FAERS Safety Report 5170713-5 (Version None)
Quarter: 2006Q4

REPORT INFORMATION
  Report Type: 
  Country: None (occurrence: None)
  Receive Date: 20060919
  Receipt Date: 20060714
  Transmission Date: 20070319
  Serious: No
  Sender: FDA-Public Use
  Company Number: 2006US001588

PATIENT
  Age: 60 Year
  Sex: Female

DRUGS (8)
  1. VESICARE [Suspect]
     Indication: STRESS URINARY INCONTINENCE
     Dosage: 5 MG ; 10MG   : UID/QD, ORAL
     Route: 048
     Dates: start: 20060601
  2. VESICARE [Suspect]
     Indication: STRESS URINARY INCONTINENCE
     Dosage: 5 MG ; 10MG   : UID/QD, ORAL
     Route: 048
     Dates: start: 20060712
  3. NEURONTIN [Concomitant]
  4. COPAXONE [Concomitant]
  5. WELLBUTRIN [Concomitant]
  6. PAXIL [Concomitant]
  7. ASPIRIN [Concomitant]
  8. TAMOXIFEN CITRATE [Concomitant]

REACTIONS (1)
  - DRUG INEFFECTIVE [None]
